FAERS Safety Report 19511562 (Version 1)
Quarter: 2021Q3

REPORT INFORMATION
  Report Type: Spontaneous
  Country: GB (occurrence: GB)
  Receive Date: 20210709
  Receipt Date: 20210709
  Transmission Date: 20211014
  Serious: Yes (Other)
  Sender: FDA-Public Use
  Company Number: GB-LUPIN PHARMACEUTICALS INC.-2021-11304

PATIENT
  Age: 57 Year
  Sex: Female

DRUGS (3)
  1. LEVOTHYROXINE. [Suspect]
     Active Substance: LEVOTHYROXINE
     Indication: HYPOTHYROIDISM
     Dosage: UNK, QD
     Route: 065
  2. IBUPROFEN. [Concomitant]
     Active Substance: IBUPROFEN
     Indication: ARTHRALGIA
     Dosage: UNK
     Route: 065
  3. ETORICOXIB. [Suspect]
     Active Substance: ETORICOXIB
     Indication: ARTHRALGIA
     Dosage: UNK
     Route: 065

REACTIONS (1)
  - Fixed eruption [Recovered/Resolved]
